FAERS Safety Report 21576261 (Version 2)
Quarter: 2022Q4

REPORT INFORMATION
  Report Type: Spontaneous
  Country: DE (occurrence: DE)
  Receive Date: 20221110
  Receipt Date: 20221215
  Transmission Date: 20230113
  Serious: Yes (Other)
  Sender: FDA-Public Use
  Company Number: DE-PFM-2022-07851

PATIENT
  Age: 5 Week
  Sex: Male

DRUGS (8)
  1. SIROLIMUS [Suspect]
     Active Substance: SIROLIMUS
     Indication: Angiosarcoma
     Dosage: FREQ:12 H;0.8 MG/M2 BSA TWICE DAILY (TARGET LEVEL 10-15 NG/ML)
     Route: 065
  2. SIROLIMUS [Suspect]
     Active Substance: SIROLIMUS
     Indication: Hypothyroidism
     Dosage: WAS GRADUALLY REDUCED TO A SERUM LEVEL OF 4 NG/ML
     Route: 065
  3. PROPRANOLOL [Suspect]
     Active Substance: PROPRANOLOL HYDROCHLORIDE
     Indication: Haemangioma of liver
     Dosage: 2.5 MG/KG/DAY
     Route: 048
  4. PROPRANOLOL [Suspect]
     Active Substance: PROPRANOLOL HYDROCHLORIDE
     Dosage: 5 MG PER KG PER DAY
     Route: 048
  5. LEVOTHYROXINE [Concomitant]
     Active Substance: LEVOTHYROXINE
     Indication: Hypothyroidism
     Dosage: 50 UG, DAILY
     Route: 048
  6. LEVOTHYROXINE [Concomitant]
     Active Substance: LEVOTHYROXINE
     Dosage: 125 UG, DAILY
     Route: 048
  7. LIOTHYRONINE [Concomitant]
     Active Substance: LIOTHYRONINE
     Indication: Hypothyroidism
     Dosage: 10 UG ORALLY UP TO THRICE DAILY
     Route: 048
  8. METHYLPREDNISOLONE [Concomitant]
     Active Substance: METHYLPREDNISOLONE
     Indication: Haemangioma of liver
     Dosage: 2.5 MG/KG/DAY
     Route: 065

REACTIONS (10)
  - Neutropenia [Unknown]
  - Renal impairment [Unknown]
  - Gastritis [Unknown]
  - Aphthous ulcer [Unknown]
  - Hepatic function abnormal [Unknown]
  - Fatigue [Unknown]
  - Hyperlipidaemia [Unknown]
  - Hypoglycaemia [Unknown]
  - Off label use [Unknown]
  - Drug effective for unapproved indication [Unknown]
